FAERS Safety Report 4993960-1 (Version None)
Quarter: 2006Q2

REPORT INFORMATION
  Report Type: 
  Country: None (occurrence: None)
  Receive Date: 20060505
  Receipt Date: 20060330
  Transmission Date: 20061013
  Serious: Yes (Hospitalization)
  Sender: FDA-Public Use
  Company Number: FR-GLAXOSMITHKLINE-B0419289A

PATIENT
  Age: 61 Year
  Sex: Male

DRUGS (12)
  1. LAMICTAL [Suspect]
     Indication: MENTAL DISORDER
     Route: 048
     Dates: start: 20060201, end: 20060228
  2. DEPAKOTE [Suspect]
     Indication: AFFECTIVE DISORDER
     Route: 048
     Dates: end: 20060228
  3. RIVOTRIL [Concomitant]
     Dosage: 5MG PER DAY
     Route: 065
     Dates: end: 20060201
  4. TERCIAN [Concomitant]
     Dosage: 50MG PER DAY
     Route: 065
     Dates: end: 20060201
  5. IMOVANE [Concomitant]
     Dosage: 1TAB PER DAY
     Route: 048
  6. AKINETON [Concomitant]
     Dosage: 4MG PER DAY
     Route: 048
  7. URBANYL [Concomitant]
     Dosage: 10MG PER DAY
     Route: 048
  8. VITAMIN B1 B6 [Concomitant]
     Dosage: 4UNIT PER DAY
     Route: 065
  9. SPECIAFOLDINE [Concomitant]
     Dosage: 5MG PER DAY
     Route: 048
  10. PLAVIX [Concomitant]
     Route: 065
  11. NEXIUM [Concomitant]
     Route: 065
  12. DIANTALVIC [Concomitant]
     Route: 065

REACTIONS (16)
  - ASPARTATE AMINOTRANSFERASE INCREASED [None]
  - BLOOD CREATINE PHOSPHOKINASE INCREASED [None]
  - BLOOD CREATININE INCREASED [None]
  - BLOOD LACTATE DEHYDROGENASE INCREASED [None]
  - BRONCHITIS [None]
  - DIARRHOEA [None]
  - DRUG INTERACTION [None]
  - DRUG RASH WITH EOSINOPHILIA AND SYSTEMIC SYMPTOMS [None]
  - EOSINOPHILIA [None]
  - GENERALISED ERYTHEMA [None]
  - INFLAMMATION [None]
  - PLEURAL EFFUSION [None]
  - PYREXIA [None]
  - RASH MACULO-PAPULAR [None]
  - SKIN EXFOLIATION [None]
  - TOXIC SKIN ERUPTION [None]
